FAERS Safety Report 16443389 (Version 1)
Quarter: 2019Q2

REPORT INFORMATION
  Report Type: Spontaneous
  Country: SE (occurrence: SE)
  Receive Date: 20190618
  Receipt Date: 20190618
  Transmission Date: 20190711
  Serious: Yes (Life-Threatening, Hospitalization, Other)
  Sender: FDA-Public Use
  Company Number: SE-SUN PHARMACEUTICAL INDUSTRIES LTD-2019R1-201068

PATIENT
  Age: 28 Year
  Sex: Female

DRUGS (2)
  1. METOPROLOL SUCCINATE. [Suspect]
     Active Substance: METOPROLOL SUCCINATE
     Dosage: 10 GRAM INGESTING IN A SUICIDE ATTEMPT
     Route: 065
  2. AMLODIPINE [Suspect]
     Active Substance: AMLODIPINE BESYLATE
     Indication: PRODUCT USED FOR UNKNOWN INDICATION
     Dosage: 1 GRAM INGESTING IN A SUICIDE ATTEMPT
     Route: 065

REACTIONS (3)
  - Shock [Not Recovered/Not Resolved]
  - Overdose [Unknown]
  - Suicide attempt [Not Recovered/Not Resolved]
